FAERS Safety Report 9399435 (Version 1)
Quarter: 2013Q3

REPORT INFORMATION
  Report Type: Spontaneous
  Country: US (occurrence: US)
  Receive Date: 20130715
  Receipt Date: 20130715
  Transmission Date: 20140515
  Serious: Yes (Hospitalization)
  Sender: FDA-Public Use
  Company Number: US-ASTRAZENECA-2013SE51064

PATIENT
  Age: 83 Year
  Sex: Female
  Weight: 54 kg

DRUGS (4)
  1. ATACAND [Suspect]
     Indication: HYPERTENSION
     Route: 048
     Dates: end: 2013
  2. ATACAND [Suspect]
     Indication: HYPERTENSION
     Dosage: GENERIC CANDESARTAN CILEXETIL (PAR) 8 MG DAILY
     Route: 048
     Dates: start: 2013
  3. NORVASC [Concomitant]
     Indication: HYPERTENSION
     Route: 048
  4. TOPICAL ESTROGEN CREAM [Concomitant]
     Indication: BLADDER DISORDER
     Route: 061

REACTIONS (9)
  - Lung disorder [Unknown]
  - Urinary tract infection [Not Recovered/Not Resolved]
  - Micturition frequency decreased [Unknown]
  - Pain in extremity [Unknown]
  - Hyperphagia [Unknown]
  - Haemorrhage [Recovered/Resolved]
  - Weight increased [Unknown]
  - Urinary retention [Unknown]
  - Pain in extremity [Recovered/Resolved]
